FAERS Safety Report 13718706 (Version 1)
Quarter: 2017Q3

REPORT INFORMATION
  Report Type: Report from Study
  Country: GR (occurrence: GR)
  Receive Date: 20170705
  Receipt Date: 20170705
  Transmission Date: 20171127
  Serious: Yes (Death)
  Sender: FDA-Public Use
  Company Number: GR-PFIZER INC-2017279650

PATIENT
  Age: 5 Year
  Sex: Male

DRUGS (14)
  1. COTRIMOXAZOLE [Concomitant]
     Active Substance: SULFAMETHOXAZOLE\TRIMETHOPRIM
     Indication: SEPSIS
     Dosage: UNK
  2. GENTAMICIN. [Concomitant]
     Active Substance: GENTAMICIN
     Indication: BACTERIAL TEST POSITIVE
  3. TIGECYCLINE. [Suspect]
     Active Substance: TIGECYCLINE
     Indication: SEPSIS
     Dosage: 2 MG/KG, SINGLE (LOADING DOSE)
     Route: 042
  4. METRONIDAZOLE. [Concomitant]
     Active Substance: METRONIDAZOLE
     Indication: SEPSIS
     Dosage: UNK
  5. AMPHOTERICIN B, LIPOSOME [Concomitant]
     Active Substance: AMPHOTERICIN B
     Indication: BACTERIAL TEST POSITIVE
  6. METRONIDAZOLE. [Concomitant]
     Active Substance: METRONIDAZOLE
     Indication: BACTERIAL TEST POSITIVE
  7. TEICOPLANIN [Concomitant]
     Active Substance: TEICOPLANIN
     Indication: BACTERIAL TEST POSITIVE
  8. TIGECYCLINE. [Suspect]
     Active Substance: TIGECYCLINE
     Indication: BACTERIAL TEST POSITIVE
     Dosage: 1.3 MG/KG, 2X/DAY, 20 MG BID
     Route: 042
  9. COLISTIN [Concomitant]
     Active Substance: COLISTIN
     Indication: SEPSIS
     Dosage: UNK
  10. COLISTIN [Concomitant]
     Active Substance: COLISTIN
     Indication: BACTERIAL TEST POSITIVE
  11. AMPHOTERICIN B, LIPOSOME [Concomitant]
     Active Substance: AMPHOTERICIN B
     Indication: SEPSIS
     Dosage: UNK
  12. TEICOPLANIN [Concomitant]
     Active Substance: TEICOPLANIN
     Indication: SEPSIS
     Dosage: UNK
  13. COTRIMOXAZOLE [Concomitant]
     Active Substance: SULFAMETHOXAZOLE\TRIMETHOPRIM
     Indication: BACTERIAL TEST POSITIVE
  14. GENTAMICIN. [Concomitant]
     Active Substance: GENTAMICIN
     Indication: SEPSIS
     Dosage: UNK

REACTIONS (1)
  - Treatment failure [Fatal]
